FAERS Safety Report 6848392-8 (Version None)
Quarter: 2010Q3

REPORT INFORMATION
  Report Type: 
  Country: None (occurrence: None)
  Receive Date: 20100716
  Receipt Date: 20100705
  Transmission Date: 20110219
  Serious: Yes (Hospitalization)
  Sender: FDA-Public Use
  Company Number: JP-ROCHE-714781

PATIENT
  Sex: Female
  Weight: 59 kg

DRUGS (15)
  1. TOCILIZUMAB [Suspect]
     Indication: RHEUMATOID ARTHRITIS
     Route: 041
     Dates: start: 20090116, end: 20090116
  2. TOCILIZUMAB [Suspect]
     Route: 041
     Dates: start: 20090220, end: 20090220
  3. TOCILIZUMAB [Suspect]
     Route: 041
     Dates: start: 20090327, end: 20090327
  4. TOCILIZUMAB [Suspect]
     Route: 041
     Dates: start: 20090422, end: 20090422
  5. TOCILIZUMAB [Suspect]
     Route: 041
     Dates: start: 20090527, end: 20090527
  6. TOCILIZUMAB [Suspect]
     Route: 041
     Dates: start: 20090624, end: 20090624
  7. TOCILIZUMAB [Suspect]
     Route: 041
     Dates: start: 20090722, end: 20100514
  8. RHEUMATREX [Suspect]
     Indication: RHEUMATOID ARTHRITIS
     Route: 048
     Dates: end: 20100101
  9. PROGRAF [Concomitant]
     Route: 048
  10. FOLIAMIN [Concomitant]
     Route: 048
  11. MYSLEE [Concomitant]
     Route: 048
  12. LOXONIN [Concomitant]
     Route: 048
  13. ULGUT [Concomitant]
     Route: 048
  14. GLAKAY [Concomitant]
     Route: 048
  15. ALESION [Concomitant]
     Route: 048
     Dates: start: 20090527

REACTIONS (3)
  - GENITAL HAEMORRHAGE [None]
  - HEPATIC FUNCTION ABNORMAL [None]
  - PRURITUS [None]
